FAERS Safety Report 5085630-9 (Version None)
Quarter: 2006Q3

REPORT INFORMATION
  Report Type: 
  Country: None (occurrence: None)
  Receive Date: 20060817
  Receipt Date: 20060809
  Transmission Date: 20061208
  Serious: Yes (Other)
  Sender: FDA-Public Use
  Company Number: 2006097305

PATIENT
  Age: 81 Year
  Sex: Male

DRUGS (2)
  1. LIPITOR [Suspect]
     Indication: BLOOD CHOLESTEROL INCREASED
     Dosage: ONCE DAILY
  2. ARICEPT [Concomitant]

REACTIONS (3)
  - FATIGUE [None]
  - GLUCOSE TOLERANCE IMPAIRED [None]
  - MUSCLE SPASMS [None]
